FAERS Safety Report 24324384 (Version 1)
Quarter: 2024Q3

REPORT INFORMATION
  Report Type: Spontaneous
  Country: BR (occurrence: None)
  Receive Date: 20240916
  Receipt Date: 20240916
  Transmission Date: 20241017
  Serious: Yes (Life-Threatening, Other)
  Sender: ASTRAZENECA
  Company Number: 2024A210500

PATIENT
  Age: 13 Year
  Sex: Female

DRUGS (4)
  1. SYMBICORT [Suspect]
     Active Substance: BUDESONIDE\FORMOTEROL FUMARATE DIHYDRATE
     Dosage: SHORT-TERM USE UNKNOWN
     Route: 055
  2. SYMBICORT [Suspect]
     Active Substance: BUDESONIDE\FORMOTEROL FUMARATE DIHYDRATE
     Indication: Asthma
     Dosage: ONCE IN THE MORNING AND ONCE IN THE EVENING
     Route: 055
     Dates: end: 20240913
  3. SYMBICORT [Suspect]
     Active Substance: BUDESONIDE\FORMOTEROL FUMARATE DIHYDRATE
     Indication: Asthma
     Dosage: 1 JET UNKNOWN
     Route: 055
     Dates: start: 20240913, end: 20240913
  4. ALBUTEROL [Concomitant]
     Active Substance: ALBUTEROL
     Indication: Mid-life crisis

REACTIONS (4)
  - Asthmatic crisis [Unknown]
  - Heart rate increased [Unknown]
  - Off label use [Unknown]
  - Condition aggravated [Unknown]

NARRATIVE: CASE EVENT DATE: 20240912
